FAERS Safety Report 23392474 (Version 1)
Quarter: 2024Q1

REPORT INFORMATION
  Report Type: Report from Study
  Country: CA (occurrence: CA)
  Receive Date: 20240111
  Receipt Date: 20240111
  Transmission Date: 20240410
  Serious: Yes (Other)
  Sender: FDA-Public Use
  Company Number: CA-OTSUKA-2024_000682

PATIENT
  Age: 42 Year
  Sex: Female

DRUGS (2)
  1. TOLVAPTAN [Suspect]
     Active Substance: TOLVAPTAN
     Indication: Congenital cystic kidney disease
     Dosage: 90 MG, QD
     Route: 048
     Dates: start: 20220613
  2. TOLVAPTAN [Suspect]
     Active Substance: TOLVAPTAN
     Dosage: INCREASED DOSE
     Route: 065
     Dates: start: 20230213

REACTIONS (2)
  - Erythema [Unknown]
  - Sinusitis [Unknown]

NARRATIVE: CASE EVENT DATE: 20240104
